FAERS Safety Report 7875536-1 (Version None)
Quarter: 2011Q4

REPORT INFORMATION
  Report Type: 
  Country: None (occurrence: None)
  Receive Date: 20111031
  Receipt Date: 20111026
  Transmission Date: 20120403
  Serious: Yes (Death)
  Sender: FDA-Public Use
  Company Number: PHHY2011BR95193

PATIENT
  Age: 14 Year
  Sex: Female

DRUGS (1)
  1. DICLOFENAC SODIUM [Suspect]
     Dosage: 500 MG, EVERY 8 HOURS

REACTIONS (2)
  - PLATELET COUNT DECREASED [None]
  - DENGUE FEVER [None]
